FAERS Safety Report 9271695 (Version 1)
Quarter: 2013Q2

REPORT INFORMATION
  Report Type: Spontaneous
  Country: US (occurrence: US)
  Receive Date: 20130506
  Receipt Date: 20130506
  Transmission Date: 20140414
  Serious: Yes (Death)
  Sender: FDA-Public Use
  Company Number: US-COVIDIEN/TYCO HEALTHCARE/MALLINCKRODT-T201203556

PATIENT
  Age: 48 Year
  Sex: Female

DRUGS (13)
  1. ROXICODONE [Suspect]
     Indication: PAIN
     Dosage: UNK
  2. HYDROCODONE/ACETAMINOPHEN [Suspect]
     Indication: PAIN
     Dosage: UNK
  3. ALPRAZOLAM [Concomitant]
     Dosage: UNK
  4. TRAZODONE [Concomitant]
     Dosage: 50 UNK, UNK
  5. CYMBALTA [Concomitant]
     Dosage: 60 UNK, UNK
  6. SOMA [Concomitant]
     Dosage: 350 UNK, UNK
  7. DILTIAZEM [Concomitant]
     Indication: BLOOD PRESSURE
     Dosage: UNK
  8. DOXEPIN [Concomitant]
     Dosage: 50 MG, UNK
  9. DIOVAN HCT [Concomitant]
     Indication: BLOOD PRESSURE
     Dosage: UNK
  10. DOXAZOSIN [Concomitant]
     Dosage: UNK
  11. RANITIDINE [Concomitant]
     Dosage: UNK
  12. PROVERA [Concomitant]
     Dosage: UNK
  13. PREMARIN [Concomitant]
     Dosage: UNK

REACTIONS (1)
  - Overdose [Fatal]
